FAERS Safety Report 4365405-6 (Version None)
Quarter: 2004Q2

REPORT INFORMATION
  Report Type: 
  Country: None (occurrence: None)
  Receive Date: 20040525
  Receipt Date: 20040525
  Transmission Date: 20050107
  Serious: No
  Sender: FDA-Public Use
  Company Number: None

PATIENT
  Sex: Female
  Weight: 51.7101 kg

DRUGS (2)
  1. AVONEX [Suspect]
     Indication: MULTIPLE SCLEROSIS
     Dosage: IM 30 MCG 1X/WK
     Route: 030
     Dates: start: 20020927, end: 20040517
  2. AVONEX [Suspect]

REACTIONS (5)
  - COUGH [None]
  - DYSPNOEA [None]
  - GRANULOMA [None]
  - LUNG NEOPLASM [None]
  - PERICARDIAL EFFUSION [None]
